FAERS Safety Report 5099273-4 (Version None)
Quarter: 2006Q3

REPORT INFORMATION
  Report Type: 
  Country: None (occurrence: None)
  Receive Date: 20060731
  Receipt Date: 20051014
  Transmission Date: 20061208
  Serious: Yes (Other)
  Sender: FDA-Public Use
  Company Number: US-2005-020407

PATIENT
  Age: 42 Year
  Sex: Female
  Weight: 86.2 kg

DRUGS (2)
  1. MAGNEVIST [Suspect]
     Indication: MAMMOGRAM
     Dosage: 2ML 1 DOSE
     Route: 042
  2. ALBUTEROL [Concomitant]

REACTIONS (3)
  - BREAST PAIN [None]
  - DYSPNOEA [None]
  - VOMITING [None]
